FAERS Safety Report 14266218 (Version 1)
Quarter: 2017Q4

REPORT INFORMATION
  Report Type: Spontaneous
  Country: JP (occurrence: JP)
  Receive Date: 20171210
  Receipt Date: 20171210
  Transmission Date: 20180321
  Serious: Yes (Death, Disabling)
  Sender: FDA-Public Use
  Company Number: JP-BEH-2017085741

PATIENT
  Age: 65 Year
  Sex: Male

DRUGS (18)
  1. PREDONINE [Concomitant]
     Active Substance: PREDNISOLONE
     Dosage: 10 MG, QD
     Route: 065
  2. FAMOTIDINE. [Concomitant]
     Active Substance: FAMOTIDINE
     Dosage: 20 MG, QD
     Route: 065
  3. TRAMCET [Concomitant]
     Active Substance: ACETAMINOPHEN\TRAMADOL
     Dosage: 2 TABLETS
     Route: 065
  4. DAIPHEN [Concomitant]
     Active Substance: SULFAMETHOXAZOLE\TRIMETHOPRIM
     Dosage: 1 TABLET QW
     Route: 065
  5. HIZENTRA [Suspect]
     Active Substance: HUMAN IMMUNOGLOBULIN G
     Indication: INFECTION PROPHYLAXIS
  6. ACARDI [Concomitant]
     Dosage: 2.5 MG, QD
     Route: 065
  7. PLETAAL [Concomitant]
     Active Substance: CILOSTAZOL
     Dosage: 200 MG, QD
     Route: 065
  8. VASOLAN                            /00014302/ [Concomitant]
     Active Substance: VERAPAMIL HYDROCHLORIDE
     Dosage: 120 MG, QD
     Route: 065
  9. HIZENTRA [Suspect]
     Active Substance: HUMAN IMMUNOGLOBULIN G
     Indication: HYPOGAMMAGLOBULINAEMIA
     Dosage: 4 G (20ML)
     Route: 058
     Dates: start: 201605
  10. REMINYL [Concomitant]
     Active Substance: GALANTAMINE
     Dosage: 16 MG, QD
     Route: 065
  11. EFFORTIL [Concomitant]
     Active Substance: ETILEFRINE HYDROCHLORIDE
     Dosage: 5 MG, QD
     Route: 065
  12. LULLAN [Concomitant]
     Active Substance: PEROSPIRONE HYDROCHLORIDE
     Dosage: 8 MG, QD
     Route: 065
  13. PENLES [Concomitant]
     Active Substance: LIDOCAINE
     Dosage: 18 MG, QD
     Route: 065
  14. NAUZELIN [Concomitant]
     Active Substance: DOMPERIDONE
     Dosage: 30 MG, QD
     Route: 065
  15. BERASUS [Concomitant]
     Active Substance: BERAPROST SODIUM
     Dosage: 240 MG, QD
     Route: 065
  16. CARVEDILOL. [Concomitant]
     Active Substance: CARVEDILOL
     Dosage: 2.5 MG, QD
     Route: 065
  17. WARFARIN [Concomitant]
     Active Substance: WARFARIN
     Dosage: 2.75 MG, QD
     Route: 065
  18. TRAZODONE [Concomitant]
     Active Substance: TRAZODONE HYDROCHLORIDE
     Dosage: 25 MG, QD
     Route: 065

REACTIONS (2)
  - General physical health deterioration [Fatal]
  - Infection [Fatal]
